FAERS Safety Report 25366272 (Version 1)
Quarter: 2025Q2

REPORT INFORMATION
  Report Type: Spontaneous
  Country: GR (occurrence: GR)
  Receive Date: 20250528
  Receipt Date: 20250528
  Transmission Date: 20250716
  Serious: Yes (Other)
  Sender: BEIGENE
  Company Number: GR-BEIGENE-BGN-2025-008290

PATIENT
  Age: 61 Year

DRUGS (1)
  1. BRUKINSA [Suspect]
     Active Substance: ZANUBRUTINIB
     Indication: Splenic marginal zone lymphoma

REACTIONS (3)
  - Lymphoma transformation [Unknown]
  - Disease progression [Unknown]
  - Therapeutic product effect incomplete [Unknown]
